FAERS Safety Report 4754720-X (Version None)
Quarter: 2005Q3

REPORT INFORMATION
  Report Type: 
  Country: None (occurrence: None)
  Receive Date: 20050829
  Receipt Date: 20050817
  Transmission Date: 20060218
  Serious: Yes (Disabling)
  Sender: FDA-Public Use
  Company Number: 200517354GDDC

PATIENT
  Age: 48 Year
  Sex: Female

DRUGS (6)
  1. TAXOTERE [Suspect]
     Indication: BREAST CANCER
     Route: 042
     Dates: start: 20050727
  2. DECADRON [Concomitant]
     Route: 048
     Dates: start: 20050727, end: 20050727
  3. ZANTAC [Concomitant]
     Route: 042
     Dates: start: 20050727, end: 20050727
  4. CYCLOPHOSPHAMIDE [Concomitant]
  5. EPIRUBICIN [Concomitant]
  6. FLUOROURACIL [Concomitant]

REACTIONS (4)
  - DEMENTIA [None]
  - EMOTIONAL DISORDER [None]
  - PARANOIA [None]
  - SUICIDAL IDEATION [None]
